FAERS Safety Report 6083611-X (Version None)
Quarter: 2009Q1

REPORT INFORMATION
  Report Type: 
  Country: None (occurrence: None)
  Receive Date: 20090219
  Receipt Date: 20090217
  Transmission Date: 20090719
  Serious: Yes (Life-Threatening, Hospitalization)
  Sender: FDA-Public Use
  Company Number: US-BRISTOL-MYERS SQUIBB COMPANY-14465116

PATIENT
  Age: 63 Year
  Sex: Male
  Weight: 93 kg

DRUGS (16)
  1. ERBITUX [Suspect]
     Indication: HEAD AND NECK CANCER
     Dosage: FIRST INFUSION-30OCT08 1DOSAGEFORM=800MG DL THEN 500MGWEEKLY
     Route: 042
     Dates: start: 20081030, end: 20081030
  2. CISPLATIN [Suspect]
     Dates: start: 20081018
  3. RADIATION THERAPY [Suspect]
     Dates: start: 20081017
  4. WARFARIN SODIUM [Concomitant]
  5. POTASSIUM CHLORIDE [Concomitant]
  6. GABAPENTIN [Concomitant]
  7. KEPPRA [Concomitant]
  8. DILANTIN [Concomitant]
  9. LORTAB [Concomitant]
  10. CELEXA [Concomitant]
  11. LASIX [Concomitant]
  12. METFORMIN HCL [Concomitant]
  13. BENADRYL [Concomitant]
     Indication: PREMEDICATION
  14. EMEND [Concomitant]
     Indication: PREMEDICATION
  15. COMPAZINE [Concomitant]
     Indication: PREMEDICATION
  16. LOPRESSOR [Concomitant]

REACTIONS (6)
  - CARDIO-RESPIRATORY ARREST [None]
  - CONVULSION [None]
  - DIZZINESS [None]
  - FALL [None]
  - FEELING ABNORMAL [None]
  - MYOCARDIAL INFARCTION [None]
